FAERS Safety Report 13192657 (Version 4)
Quarter: 2017Q1

REPORT INFORMATION
  Report Type: Spontaneous
  Country: TR (occurrence: TR)
  Receive Date: 20170207
  Receipt Date: 20170313
  Transmission Date: 20170428
  Serious: Yes (Death, Other)
  Sender: FDA-Public Use
  Company Number: TR-BEH-2017077792

PATIENT
  Age: 82 Year
  Sex: Male
  Weight: 86 kg

DRUGS (14)
  1. OXERUTINS [Concomitant]
  2. URIKOLIZ [Concomitant]
     Active Substance: ALLOPURINOL
  3. DESEFIN [Concomitant]
     Dosage: 1 G VIAL
     Route: 065
  4. DELIX                              /00885601/ [Concomitant]
     Active Substance: RAMIPRIL
     Dosage: 2.5 MG, UNK
     Route: 065
  5. KLACID                             /00984601/ [Concomitant]
     Active Substance: CLARITHROMYCIN
  6. COMBIVENT [Concomitant]
     Active Substance: ALBUTEROL SULFATE\IPRATROPIUM BROMIDE
  7. ZESTAT                             /01293201/ [Concomitant]
  8. DIGOXIN. [Concomitant]
     Active Substance: DIGOXIN
     Dosage: 0.25 MG, UNK
     Route: 065
  9. PRIVIGEN [Suspect]
     Active Substance: HUMAN IMMUNOGLOBULIN G
     Dosage: 30 G/DAY
     Route: 042
     Dates: start: 20161226, end: 20161230
  10. DESAL                              /00032601/ [Concomitant]
  11. PANTPAS [Concomitant]
     Active Substance: PANTOPRAZOLE SODIUM
  12. COUMADIN [Concomitant]
     Active Substance: WARFARIN SODIUM
     Dosage: 5 MG, UNK
     Route: 065
  13. PRIVIGEN [Suspect]
     Active Substance: HUMAN IMMUNOGLOBULIN G
     Indication: GUILLAIN-BARRE SYNDROME
     Dosage: 5 G/DAY
     Route: 042
     Dates: start: 20161226, end: 20161230
  14. CONCOR [Concomitant]
     Active Substance: BISOPROLOL FUMARATE

REACTIONS (3)
  - Disability [Fatal]
  - Asthenia [Fatal]
  - Drug ineffective [Fatal]

NARRATIVE: CASE EVENT DATE: 20161226
